FAERS Safety Report 9442550 (Version 2)
Quarter: 2014Q2

REPORT INFORMATION
  Report Type: Spontaneous
  Country: US (occurrence: US)
  Receive Date: 20130806
  Receipt Date: 20140428
  Transmission Date: 20141212
  Serious: Yes (Congenital Anomaly, Other)
  Sender: FDA-Public Use
  Company Number: US-PFIZER INC-2013225269

PATIENT
  Sex: Male

DRUGS (2)
  1. ZOLOFT [Suspect]
     Dosage: UNK
     Route: 064
  2. SERTRALINE HCL [Suspect]
     Dosage: UNK
     Route: 064

REACTIONS (7)
  - Maternal exposure during pregnancy [Unknown]
  - Patent ductus arteriosus [Unknown]
  - Intraventricular haemorrhage [Unknown]
  - Congenital anomaly [Unknown]
  - Autism [Unknown]
  - Attention deficit/hyperactivity disorder [Unknown]
  - Anxiety [Unknown]
